FAERS Safety Report 10347579 (Version 4)
Quarter: 2017Q4

REPORT INFORMATION
  Report Type: Report from Study
  Country: US (occurrence: US)
  Receive Date: 20140729
  Receipt Date: 20171003
  Transmission Date: 20180320
  Serious: Yes (Life-Threatening, Hospitalization, Other)
  Sender: FDA-Public Use
  Company Number: US-SANOFI-AVENTIS-2013SA087111

PATIENT
  Age: 44 Year
  Sex: Female

DRUGS (9)
  1. FLAXSEED [Concomitant]
     Active Substance: FLAX SEED
  2. AUBAGIO [Suspect]
     Active Substance: TERIFLUNOMIDE
     Indication: MULTIPLE SCLEROSIS
     Route: 048
     Dates: start: 20130709
  3. SPIRONOLACTONE. [Concomitant]
     Active Substance: SPIRONOLACTONE
     Indication: MULTIPLE SCLEROSIS
     Route: 065
     Dates: start: 20121209
  4. FAMOTIDINE. [Concomitant]
     Active Substance: FAMOTIDINE
     Indication: FLUID RETENTION
     Route: 065
  5. LETAIRIS [Concomitant]
     Active Substance: AMBRISENTAN
     Indication: LUNG DISORDER
     Route: 065
     Dates: start: 201209
  6. AUBAGIO [Suspect]
     Active Substance: TERIFLUNOMIDE
     Indication: MULTIPLE SCLEROSIS
     Route: 048
     Dates: start: 20120914
  7. ADCIRCA [Concomitant]
     Active Substance: TADALAFIL
  8. MONTELUKAST [Concomitant]
     Active Substance: MONTELUKAST SODIUM
     Indication: HYPERSENSITIVITY
     Route: 065
  9. FLUOXETINE [Concomitant]
     Active Substance: FLUOXETINE HYDROCHLORIDE
     Indication: MULTIPLE SCLEROSIS
     Route: 065
     Dates: start: 2000

REACTIONS (13)
  - Diarrhoea [Unknown]
  - Anxiety [Recovering/Resolving]
  - Decreased interest [Unknown]
  - Tinea infection [Not Recovered/Not Resolved]
  - Rash [Not Recovered/Not Resolved]
  - Dry skin [Not Recovered/Not Resolved]
  - Secretion discharge [Not Recovered/Not Resolved]
  - Dyspepsia [Unknown]
  - Weight decreased [Unknown]
  - Depression [Recovering/Resolving]
  - Pulmonary arterial hypertension [Unknown]
  - Lung disorder [Unknown]
  - Pruritus [Not Recovered/Not Resolved]

NARRATIVE: CASE EVENT DATE: 201303
